FAERS Safety Report 5377172-8 (Version None)
Quarter: 2007Q3

REPORT INFORMATION
  Report Type: 
  Country: None (occurrence: None)
  Receive Date: 20070703
  Receipt Date: 20070621
  Transmission Date: 20080115
  Serious: Yes (Hospitalization, Other)
  Sender: FDA-Public Use
  Company Number: US-ELI_LILLY_AND_COMPANY-US200705003526

PATIENT
  Age: 62 Year
  Sex: Male

DRUGS (11)
  1. BYETTA [Suspect]
     Indication: TYPE 2 DIABETES MELLITUS
     Dosage: 5 UG, 2/D
     Route: 065
     Dates: start: 20050912, end: 20051115
  2. BYETTA [Suspect]
     Dosage: 10 UG, 2/D
     Route: 065
     Dates: start: 20060428, end: 20070507
  3. BYETTA [Suspect]
     Dosage: 5 UG, 2/D
     Route: 065
     Dates: start: 20060428, end: 20070507
  4. METFORMIN [Concomitant]
     Dosage: 500 MG, 2/D
     Route: 065
  5. NOVOLIN 70/30 [Concomitant]
     Dosage: 60 U, 2/D
     Route: 065
  6. GLYBURIDE [Concomitant]
     Dosage: 5 MG, 2/D
     Route: 065
  7. TENORETIC 100 [Concomitant]
     Dosage: UNK D/F, DAILY (1/D)
     Route: 048
  8. ADVAIR DISKUS 100/50 [Concomitant]
     Indication: CHRONIC OBSTRUCTIVE PULMONARY DISEASE
     Dosage: UNK D/F, 2/D
     Route: 055
  9. SPIRIVA [Concomitant]
     Dosage: 1 UNK, DAILY (1/D)
     Route: 055
  10. ASPIRIN [Concomitant]
     Dosage: 81 MG, DAILY (1/D)
     Route: 048
  11. INSULIN [Concomitant]
     Dosage: 75 U, 2/D
     Route: 065

REACTIONS (12)
  - ABDOMINAL DISTENSION [None]
  - AZOTAEMIA [None]
  - BLOOD GLUCOSE INCREASED [None]
  - CARDIAC FAILURE CONGESTIVE [None]
  - CHOLELITHIASIS [None]
  - CHRONIC OBSTRUCTIVE PULMONARY DISEASE [None]
  - CORONARY ARTERY DISEASE [None]
  - ESSENTIAL HYPERTENSION [None]
  - HEPATIC STEATOSIS [None]
  - IMPAIRED GASTRIC EMPTYING [None]
  - SLEEP APNOEA SYNDROME [None]
  - WHITE BLOOD CELL COUNT INCREASED [None]
